FAERS Safety Report 9438808 (Version 2)
Quarter: 2013Q3

REPORT INFORMATION
  Report Type: Spontaneous
  Country: US (occurrence: US)
  Receive Date: 20130802
  Receipt Date: 20130809
  Transmission Date: 20140515
  Serious: No
  Sender: FDA-Public Use
  Company Number: US-PFIZER INC-2013221144

PATIENT
  Age: 35 Year
  Sex: Female

DRUGS (8)
  1. AZITHROMYCIN [Suspect]
     Dosage: UNK
  2. NEURONTIN [Suspect]
     Indication: PAIN
     Dosage: UNK
  3. PROMETHAZINE HCL [Suspect]
     Dosage: UNK
  4. ZOLOFT [Suspect]
     Indication: DEPRESSION
     Dosage: UNK
  5. AMBIEN [Suspect]
     Dosage: UNK
  6. AUGMENTIN [Suspect]
     Indication: INFECTION
     Dosage: UNK
  7. LUNESTA [Suspect]
     Dosage: UNK
  8. MACROBID [Suspect]
     Dosage: UNK

REACTIONS (1)
  - Drug hypersensitivity [Recovered/Resolved]
